FAERS Safety Report 19646253 (Version 1)
Quarter: 2021Q3

REPORT INFORMATION
  Report Type: Spontaneous
  Country: US (occurrence: US)
  Receive Date: 20210802
  Receipt Date: 20210802
  Transmission Date: 20211014
  Serious: Yes (Other)
  Sender: FDA-Public Use
  Company Number: US-FERRINGPH-2021FE04775

PATIENT
  Age: 39 Year
  Sex: Female

DRUGS (1)
  1. DESMOPRESSIN [Suspect]
     Active Substance: DESMOPRESSIN
     Indication: DIABETES INSIPIDUS
     Route: 065

REACTIONS (4)
  - Poor quality product administered [Unknown]
  - Nasal septum perforation [Recovered/Resolved]
  - Wrong technique in product usage process [Recovered/Resolved]
  - Recalled product administered [Unknown]
